FAERS Safety Report 6097039-X (Version None)
Quarter: 2009Q1

REPORT INFORMATION
  Report Type: 
  Country: None (occurrence: None)
  Receive Date: 20090227
  Receipt Date: 20090218
  Transmission Date: 20090719
  Serious: Yes (Hospitalization, Other)
  Sender: FDA-Public Use
  Company Number: PHHY2009FR05313

PATIENT
  Sex: Female
  Weight: 91 kg

DRUGS (6)
  1. ACLASTA [Suspect]
     Indication: OSTEOPOROSIS
     Dosage: 5 MG, UNK
     Route: 042
  2. CORTISONE [Concomitant]
     Dosage: UNK
  3. NSAID'S [Concomitant]
     Dosage: UNK
  4. CORTANCYL [Concomitant]
     Indication: RHEUMATOID ARTHRITIS
     Dosage: 5 MG, QD
     Route: 048
     Dates: start: 20050101
  5. ZEFFIX [Concomitant]
     Indication: HEPATITIS B
     Dosage: 1 DF, QD
     Route: 048
     Dates: start: 20071001
  6. PARACETAMOL [Concomitant]
     Dosage: 1 G, BID
     Dates: start: 20090203

REACTIONS (4)
  - CHEST PAIN [None]
  - DYSPHAGIA [None]
  - DYSPNOEA [None]
  - VOMITING [None]
